FAERS Safety Report 11548502 (Version 1)
Quarter: 2015Q3

REPORT INFORMATION
  Report Type: Spontaneous
  Country: US (occurrence: US)
  Receive Date: 20150903
  Receipt Date: 20150903
  Transmission Date: 20151125
  Serious: No
  Sender: FDA-Public Use
  Company Number: US-ELI_LILLY_AND_COMPANY-US201304003017

PATIENT
  Sex: Female

DRUGS (2)
  1. HUMALOG [Suspect]
     Active Substance: INSULIN LISPRO
     Indication: GESTATIONAL DIABETES
     Dosage: 60 U, QD
     Dates: start: 20130406
  2. HUMALOG [Suspect]
     Active Substance: INSULIN LISPRO
     Dosage: 60 U, QD

REACTIONS (3)
  - Blood glucose increased [Recovered/Resolved]
  - Maternal exposure during pregnancy [Not Recovered/Not Resolved]
  - Drug ineffective [Recovered/Resolved]
